FAERS Safety Report 8543334-1 (Version None)
Quarter: 2012Q3

REPORT INFORMATION
  Report Type: 
  Country: None (occurrence: None)
  Receive Date: 20120727
  Receipt Date: 20120719
  Transmission Date: 20120928
  Serious: Yes (Other)
  Sender: FDA-Public Use
  Company Number: US-US-EMD SERONO, INC.-7149029

PATIENT
  Sex: Male

DRUGS (2)
  1. VITAMIN D [Concomitant]
     Indication: VITAMIN D DECREASED
  2. REBIF [Suspect]
     Indication: PRODUCT USED FOR UNKNOWN INDICATION
     Route: 058
     Dates: start: 20100709

REACTIONS (3)
  - HYPERTENSION [None]
  - VITAMIN D DECREASED [None]
  - INFLUENZA [None]
